FAERS Safety Report 6047260-1 (Version None)
Quarter: 2009Q1

REPORT INFORMATION
  Report Type: 
  Country: None (occurrence: None)
  Receive Date: 20090121
  Receipt Date: 20081022
  Transmission Date: 20090719
  Serious: Yes (Hospitalization)
  Sender: FDA-Public Use
  Company Number: 2008US002897

PATIENT
  Age: 77 Year
  Sex: Female

DRUGS (8)
  1. VESICARE [Suspect]
     Indication: URINARY INCONTINENCE
     Dosage: 1, UID/QD, ORAL
     Route: 048
  2. AMITRITYLINE (AMITRIPTYLINE) [Concomitant]
  3. LORAZEPAM [Concomitant]
  4. PAROXETINE HCL [Concomitant]
  5. PREDNISONE TAB [Concomitant]
  6. HYDOCODONE (HYDROCODONE) [Concomitant]
  7. MORPHINE SULFATE INJ [Concomitant]
  8. OXYCODONE HCL [Concomitant]

REACTIONS (1)
  - FAECALOMA [None]
